FAERS Safety Report 9560141 (Version 2)
Quarter: 2013Q4

REPORT INFORMATION
  Report Type: Spontaneous
  Country: IT (occurrence: IT)
  Receive Date: 20130927
  Receipt Date: 20131024
  Transmission Date: 20140711
  Serious: Yes (Hospitalization)
  Sender: FDA-Public Use
  Company Number: IT-SANOFI-AVENTIS-2013SA093919

PATIENT
  Age: 80 Year
  Sex: Female

DRUGS (10)
  1. FUROSEMIDE [Suspect]
     Indication: PRODUCT USED FOR UNKNOWN INDICATION
     Route: 048
  2. COUMADIN [Suspect]
     Indication: PRODUCT USED FOR UNKNOWN INDICATION
     Route: 065
  3. HUMALOG [Concomitant]
  4. LANTUS [Concomitant]
  5. LERCADIP [Concomitant]
     Dosage: STRENGTH: 20 MG
  6. LORTAAN [Concomitant]
     Dosage: STRENGTH: 50 MG
  7. CATAPRESAN [Concomitant]
     Dosage: STRENGTH: 300 MCG
  8. KANRENOL [Concomitant]
     Dosage: STRENGTH: 100 MG
  9. LANOXIN [Concomitant]
  10. BISOPROLOL HEMIFUMARATE [Concomitant]

REACTIONS (2)
  - Malaise [Unknown]
  - Oliguria [Unknown]
